FAERS Safety Report 15889536 (Version 2)
Quarter: 2019Q1

REPORT INFORMATION
  Report Type: Spontaneous
  Country: US (occurrence: US)
  Receive Date: 20190130
  Receipt Date: 20190204
  Transmission Date: 20190417
  Serious: Yes (Hospitalization, Other)
  Sender: FDA-Public Use
  Company Number: US-PFIZER INC-2019037381

PATIENT
  Age: 16 Year
  Sex: Male

DRUGS (2)
  1. AMPICILLIN SODIUM. [Suspect]
     Active Substance: AMPICILLIN SODIUM
     Indication: URINARY TRACT INFECTION
     Dosage: UNK
  2. AMPICILLIN SODIUM. [Suspect]
     Active Substance: AMPICILLIN SODIUM
     Indication: ESCHERICHIA INFECTION

REACTIONS (5)
  - Pancreatitis [Recovered/Resolved]
  - Systemic inflammatory response syndrome [Recovered/Resolved]
  - Salmonellosis [Recovered/Resolved]
  - Clostridium difficile infection [Recovered/Resolved]
  - Enterocolitis [Recovered/Resolved]
